FAERS Safety Report 8787434 (Version 1)
Quarter: 2012Q4

REPORT INFORMATION
  Report Type: 
  Country: US (occurrence: US)
  Receive Date: 20120914
  Receipt Date: 20120914
  Transmission Date: 20130627
  Serious: No
  Sender: FDA-Public Use
  Company Number: US-VERTEX PHARMACEUTICAL INC.-AE-2012-011058

PATIENT
  Sex: Male
  Weight: 100 kg

DRUGS (3)
  1. INCIVEK [Suspect]
     Indication: HEPATITIS C
     Dosage: 750 mg, UNK
     Route: 048
  2. PEGINTERFERON ALFA [Concomitant]
     Indication: HEPATITIS C
     Route: 058
  3. RIBAVIRIN [Concomitant]
     Indication: HEPATITIS C
     Dosage: 3 DF, bid
     Route: 048

REACTIONS (2)
  - Rash maculo-papular [Recovered/Resolved]
  - Pruritus [Unknown]
